FAERS Safety Report 20326058 (Version 2)
Quarter: 2022Q1

REPORT INFORMATION
  Report Type: Spontaneous
  Country: US (occurrence: US)
  Receive Date: 20220112
  Receipt Date: 20220318
  Transmission Date: 20220423
  Serious: No
  Sender: FDA-Public Use
  Company Number: US-ORGANON-O2201USA000718

PATIENT
  Sex: Female

DRUGS (9)
  1. SINEMET [Suspect]
     Active Substance: CARBIDOPA\LEVODOPA
     Dosage: UNK
     Route: 048
  2. GOCOVRI [Suspect]
     Active Substance: AMANTADINE
     Indication: Dyskinesia
     Dosage: 68.5 MILLIGRAM, BID 1 AT NIGHT 1 AT DAY
     Route: 048
     Dates: start: 2021, end: 2021
  3. GOCOVRI [Suspect]
     Active Substance: AMANTADINE
     Dosage: 274 MILLIGRAM, QD AT NIGHT
     Route: 048
     Dates: start: 20211124
  4. UBIQUINOL [Concomitant]
     Active Substance: UBIQUINOL
     Dosage: UNK
  5. VITAMIN D3 [Concomitant]
     Active Substance: CHOLECALCIFEROL
     Dosage: UNK
  6. MELATONIN [Concomitant]
     Active Substance: MELATONIN
     Dosage: UNK
  7. ZOLPIDEM [Concomitant]
     Active Substance: ZOLPIDEM TARTRATE
     Dosage: UNK
  8. SERTRALINE [Concomitant]
     Active Substance: SERTRALINE HYDROCHLORIDE
     Dosage: UNK
  9. NOURIANZ [Concomitant]
     Active Substance: ISTRADEFYLLINE
     Dosage: UNK

REACTIONS (6)
  - Sedation [Unknown]
  - Balance disorder [Unknown]
  - Gait inability [Unknown]
  - Feeling abnormal [Unknown]
  - Drug ineffective [Unknown]
  - Constipation [Unknown]

NARRATIVE: CASE EVENT DATE: 20210101
